FAERS Safety Report 20638970 (Version 2)
Quarter: 2022Q2

REPORT INFORMATION
  Report Type: Spontaneous
  Country: JP (occurrence: JP)
  Receive Date: 20220325
  Receipt Date: 20220408
  Transmission Date: 20220721
  Serious: Yes (Hospitalization)
  Sender: FDA-Public Use
  Company Number: JP-BAXTER-2022BAX006440

PATIENT
  Age: 19 Year
  Sex: Male

DRUGS (14)
  1. MESNA [Suspect]
     Active Substance: MESNA
     Indication: Product used for unknown indication
     Dosage: 5TH COURSE
     Route: 042
  2. MESNA [Suspect]
     Active Substance: MESNA
     Dosage: 6TH COURSE
     Route: 042
     Dates: start: 20220117
  3. IFEX [Suspect]
     Active Substance: IFOSFAMIDE
     Indication: Malignant neoplasm of spermatic cord
     Dosage: 5TH COURSE
     Route: 042
     Dates: start: 20211216, end: 20211220
  4. IFEX [Suspect]
     Active Substance: IFOSFAMIDE
     Dosage: 6TH COURSE; DOSE REDUCED
     Route: 042
     Dates: start: 20220117, end: 20220121
  5. DOXORUBICIN HYDROCHLORIDE [Suspect]
     Active Substance: DOXORUBICIN HYDROCHLORIDE
     Indication: Malignant neoplasm of spermatic cord
     Route: 042
     Dates: start: 20211216, end: 20211218
  6. MEYLON [Concomitant]
     Active Substance: SODIUM BICARBONATE
     Indication: Product used for unknown indication
     Route: 042
  7. G ranisetron [Concomitant]
     Indication: Product used for unknown indication
     Route: 042
  8. DEXAMETHASONE SODIUM PHOSPHATE [Concomitant]
     Active Substance: DEXAMETHASONE SODIUM PHOSPHATE
     Indication: Product used for unknown indication
     Route: 042
  9. HYDROMORPHONE HYDROCHLORIDE [Concomitant]
     Active Substance: HYDROMORPHONE HYDROCHLORIDE
     Indication: Product used for unknown indication
     Route: 048
  10. HYDROMORPHONE HYDROCHLORIDE [Concomitant]
     Active Substance: HYDROMORPHONE HYDROCHLORIDE
     Indication: Product used for unknown indication
     Route: 048
  11. NAPROXEN SODIUM [Concomitant]
     Active Substance: NAPROXEN SODIUM
     Indication: Product used for unknown indication
     Route: 048
  12. D enotas [Concomitant]
     Indication: Product used for unknown indication
     Route: 048
  13. VONOPRAZAN FUMARATE [Concomitant]
     Active Substance: VONOPRAZAN FUMARATE
     Indication: Product used for unknown indication
     Route: 048
  14. BILASTINE [Concomitant]
     Active Substance: BILASTINE
     Indication: Product used for unknown indication
     Route: 048

REACTIONS (1)
  - Cystitis haemorrhagic [Recovering/Resolving]

NARRATIVE: CASE EVENT DATE: 20211223
